FAERS Safety Report 18764295 (Version 3)
Quarter: 2021Q1

REPORT INFORMATION
  Report Type: Other
  Country: PT (occurrence: PT)
  Receive Date: 20210120
  Receipt Date: 20210131
  Transmission Date: 20210419
  Serious: Yes (Disabling, Other)
  Sender: FDA-Public Use
  Company Number: PT-ROCHE-2750055

PATIENT
  Sex: Male

DRUGS (10)
  1. TRITICUM [Concomitant]
     Active Substance: TRAZODONE HYDROCHLORIDE
  2. PANTOPRAZOLE [Concomitant]
     Active Substance: PANTOPRAZOLE
  3. ATARAX [Concomitant]
     Active Substance: HYDROXYZINE HYDROCHLORIDE
  4. ESBRIET [Suspect]
     Active Substance: PIRFENIDONE
     Route: 048
     Dates: start: 202012
  5. ESBRIET [Suspect]
     Active Substance: PIRFENIDONE
     Indication: IDIOPATHIC PULMONARY FIBROSIS
     Dosage: ONGOING
     Route: 048
     Dates: start: 20201214
  6. CALCITRIN [Concomitant]
  7. ADALGUR [Concomitant]
  8. ESBRIET [Suspect]
     Active Substance: PIRFENIDONE
     Dosage: ONGOING
     Route: 048
     Dates: start: 202012
  9. ORVATEZ [Concomitant]
     Active Substance: ATORVASTATIN CALCIUM\EZETIMIBE
  10. AVAMYS [Concomitant]
     Active Substance: FLUTICASONE FUROATE

REACTIONS (7)
  - Headache [Not Recovered/Not Resolved]
  - Vomiting [Not Recovered/Not Resolved]
  - Pruritus [Not Recovered/Not Resolved]
  - Asthenia [Not Recovered/Not Resolved]
  - Dysphagia [Not Recovered/Not Resolved]
  - Nervousness [Recovered/Resolved]
  - Dry mouth [Not Recovered/Not Resolved]
